FAERS Safety Report 6946491 (Version 4)
Quarter: 2012Q4

REPORT INFORMATION
  Report Type: 
  Country: DE (occurrence: DE)
  Receive Date: 20090320
  Receipt Date: 20120926
  Transmission Date: 20130627
  Serious: Yes (Death, Hospitalization)
  Sender: FDA-Public Use
  Company Number: DE-RANBAXY-2009RR-22607

PATIENT
  Age: 95 Year
  Sex: Male
  Weight: 60 kg

DRUGS (9)
  1. CARVEDILOL [Suspect]
     Indication: HYPERTENSION
     Dosage: 6.25 mg, bid
     Route: 048
     Dates: start: 2000, end: 20081201
  2. DIGITOXIN [Suspect]
     Indication: CARDIAC FAILURE CHRONIC
     Dosage: 0.01 mg, qd
     Route: 048
     Dates: start: 2000, end: 20081201
  3. ASS [Concomitant]
     Indication: PROPHYLAXIS
     Dosage: 50 mg, qd
     Route: 048
     Dates: start: 2000, end: 20081208
  4. LASIX [Concomitant]
     Indication: HYPERTENSION
     Dosage: 20 mg, qd
     Route: 048
     Dates: start: 2000, end: 20081201
  5. LASIX [Concomitant]
     Dosage: 40 mg, UNK
     Route: 042
     Dates: start: 20081201
  6. GLIBENCLAMIDE [Concomitant]
     Indication: TYPE 2 DIABETES MELLITUS
     Dosage: 3.5-0-1.75
     Route: 048
     Dates: start: 2000
  7. RAMIPRIL HEXAL COMP. 2.5MG/ 12.5 MG TABLETTEN [Concomitant]
     Indication: HYPERTENSION
     Dosage: 2.5 mg, qd
     Route: 048
     Dates: start: 2000, end: 20081201
  8. RAMIPRIL HEXAL COMP. 2.5MG/ 12.5 MG TABLETTEN [Concomitant]
     Dosage: 1.25 mg, qd
     Dates: start: 20081203
  9. TORASEMIDE [Concomitant]
     Indication: HYPERTENSION
     Dosage: 5 mg, qd
     Route: 048
     Dates: start: 2000, end: 20081201

REACTIONS (1)
  - Bradyarrhythmia [Recovered/Resolved]
